FAERS Safety Report 21965686 (Version 3)
Quarter: 2023Q4

REPORT INFORMATION
  Report Type: Spontaneous
  Country: FR (occurrence: FR)
  Receive Date: 20230208
  Receipt Date: 20231110
  Transmission Date: 20240110
  Serious: Yes (Death, Other)
  Sender: FDA-Public Use
  Company Number: FR-INCYTE CORPORATION-2023IN001215

PATIENT

DRUGS (2)
  1. TAFASITAMAB [Suspect]
     Active Substance: TAFASITAMAB
     Indication: Diffuse large B-cell lymphoma
     Dosage: 684 MILLIGRAM
     Route: 042
     Dates: start: 20220628, end: 20220706
  2. IVERMECTIN [Concomitant]
     Active Substance: IVERMECTIN
     Indication: Eosinophilia
     Dosage: UNK
     Route: 065
     Dates: start: 20220511

REACTIONS (3)
  - Diffuse large B-cell lymphoma [Fatal]
  - Disease progression [Fatal]
  - Drug ineffective [Unknown]
